FAERS Safety Report 5540888-4 (Version None)
Quarter: 2007Q4

REPORT INFORMATION
  Report Type: 
  Country: None (occurrence: None)
  Receive Date: 20071129
  Receipt Date: 20070626
  Transmission Date: 20080405
  Serious: Yes (Hospitalization)
  Sender: FDA-Public Use
  Company Number: US200706006110

PATIENT
  Sex: Female

DRUGS (3)
  1. ZYPREXA [Suspect]
     Dosage: 10 MG, 2/D, ORAL; 10 MG, 2/D, ORAL
     Route: 048
     Dates: start: 20030101
  2. ZYPREXA [Suspect]
     Dosage: 10 MG, 2/D, ORAL; 10 MG, 2/D, ORAL
     Route: 048
     Dates: start: 20070501
  3. DEPAKOTE [Concomitant]

REACTIONS (1)
  - PRIAPISM [None]
